FAERS Safety Report 12695430 (Version 2)
Quarter: 2019Q1

REPORT INFORMATION
  Report Type: Spontaneous
  Country: BR (occurrence: BR)
  Receive Date: 20160829
  Receipt Date: 20190215
  Transmission Date: 20190417
  Serious: Yes (Other)
  Sender: FDA-Public Use
  Company Number: BR-JNJFOC-20160814926

PATIENT
  Age: 32 Year
  Sex: Female

DRUGS (13)
  1. AMOXICILLIN AND CLAVULANATE POTASSIUM [Suspect]
     Active Substance: AMOXICILLIN\CLAVULANATE POTASSIUM
     Indication: SINUSITIS
     Route: 065
  2. AMOXICILLIN AND CLAVULANATE POTASSIUM [Suspect]
     Active Substance: AMOXICILLIN\CLAVULANATE POTASSIUM
     Indication: NASOPHARYNGITIS
     Route: 065
  3. TYLEX (CODEINE PHOSPHATE\PARACETAMOL) [Suspect]
     Active Substance: ACETAMINOPHEN\CODEINE PHOSPHATE
     Indication: HEADACHE
     Route: 065
  4. AMOXICILLIN AND CLAVULANATE POTASSIUM [Suspect]
     Active Substance: AMOXICILLIN\CLAVULANATE POTASSIUM
     Indication: HEADACHE
     Route: 065
  5. ALIVIUM [Suspect]
     Active Substance: IBUPROFEN
     Indication: NASOPHARYNGITIS
     Route: 065
  6. PREDSIM [Suspect]
     Active Substance: PREDNISOLONE
     Indication: HEADACHE
     Route: 065
  7. ALIVIUM [Suspect]
     Active Substance: IBUPROFEN
     Indication: SINUSITIS
     Route: 065
  8. TYLEX (CODEINE PHOSPHATE\PARACETAMOL) [Suspect]
     Active Substance: ACETAMINOPHEN\CODEINE PHOSPHATE
     Indication: SINUSITIS
     Route: 065
  9. TYLEX (CODEINE PHOSPHATE\PARACETAMOL) [Suspect]
     Active Substance: ACETAMINOPHEN\CODEINE PHOSPHATE
     Indication: NASOPHARYNGITIS
     Route: 065
  10. ALIVIUM [Suspect]
     Active Substance: IBUPROFEN
     Indication: HEADACHE
     Route: 065
  11. REMICADE [Concomitant]
     Active Substance: INFLIXIMAB
     Indication: CROHN^S DISEASE
     Dosage: PERFORMED LAST INFUSION ON 02-JUL-2016.
     Route: 065
     Dates: start: 20151126
  12. PREDSIM [Suspect]
     Active Substance: PREDNISOLONE
     Indication: SINUSITIS
     Route: 065
  13. PREDSIM [Suspect]
     Active Substance: PREDNISOLONE
     Indication: NASOPHARYNGITIS
     Route: 065

REACTIONS (3)
  - Pollakiuria [Unknown]
  - Crohn^s disease [Unknown]
  - Diarrhoea [Unknown]

NARRATIVE: CASE EVENT DATE: 201606
